FAERS Safety Report 11720077 (Version 5)
Quarter: 2016Q3

REPORT INFORMATION
  Report Type: Spontaneous
  Country: US (occurrence: US)
  Receive Date: 20151110
  Receipt Date: 20160805
  Transmission Date: 20161109
  Serious: Yes (Hospitalization, Other)
  Sender: FDA-Public Use
  Company Number: US-PFIZER INC-2015380962

PATIENT
  Age: 44 Year
  Sex: Male
  Weight: 79 kg

DRUGS (6)
  1. DEPO-MEDROL [Suspect]
     Active Substance: METHYLPREDNISOLONE ACETATE
     Indication: URTICARIA CHRONIC
     Dosage: 80MG ONCE TO LEFT GLUTE (1 TIME DOSE)
     Route: 030
     Dates: start: 20151009, end: 20151009
  2. LORATADINE. [Suspect]
     Active Substance: LORATADINE
     Indication: URTICARIA
     Dosage: 20 MG, 2X/DAY
     Route: 048
     Dates: start: 20151009, end: 20151103
  3. DEPO-MEDROL [Suspect]
     Active Substance: METHYLPREDNISOLONE ACETATE
     Indication: ANGIOEDEMA
  4. LORATADINE. [Suspect]
     Active Substance: LORATADINE
     Indication: PRURITUS
  5. PATADAY [Concomitant]
     Active Substance: OLOPATADINE HYDROCHLORIDE
     Indication: CONJUNCTIVITIS ALLERGIC
     Dosage: 1 GTT, AS NEEDED (0.2%, 1 DROP IN AFFECTED EYE BID AS NEEDED)
     Route: 047
     Dates: start: 20150622
  6. FLONASE [Concomitant]
     Active Substance: FLUTICASONE PROPIONATE
     Indication: RHINITIS ALLERGIC
     Dosage: 50 UG, 2X/DAY
     Dates: start: 20150415

REACTIONS (5)
  - Staphylococcal infection [Not Recovered/Not Resolved]
  - Urticaria [Not Recovered/Not Resolved]
  - Infection [Not Recovered/Not Resolved]
  - Sepsis [Not Recovered/Not Resolved]
  - Injection site cellulitis [Recovering/Resolving]

NARRATIVE: CASE EVENT DATE: 2015
